FAERS Safety Report 19707367 (Version 1)
Quarter: 2021Q3

REPORT INFORMATION
  Report Type: Spontaneous
  Country: CN (occurrence: CN)
  Receive Date: 20210817
  Receipt Date: 20210817
  Transmission Date: 20211014
  Serious: Yes (Life-Threatening, Hospitalization)
  Sender: FDA-Public Use
  Company Number: CN-JNJFOC-20210825731

PATIENT
  Age: 14 Year
  Sex: Female
  Weight: 47 kg

DRUGS (1)
  1. RISPERDAL [Suspect]
     Active Substance: RISPERIDONE
     Indication: MENTAL DISORDER
     Route: 048
     Dates: start: 20210712, end: 20210722

REACTIONS (1)
  - Tachycardia [Recovering/Resolving]

NARRATIVE: CASE EVENT DATE: 20210722
